FAERS Safety Report 25494380 (Version 2)
Quarter: 2025Q3

REPORT INFORMATION
  Report Type: Spontaneous
  Country: US (occurrence: US)
  Receive Date: 20250630
  Receipt Date: 20250725
  Transmission Date: 20251021
  Serious: Yes (Other)
  Sender: AKEBIA THERAPEUTICS
  Company Number: US-KERYX BIOPHARMACEUTICALS INC.-US-AKEB-25-000319

PATIENT
  Sex: Male

DRUGS (1)
  1. VADADUSTAT [Suspect]
     Active Substance: VADADUSTAT
     Indication: Anaemia
     Dosage: 600 MILLIGRAM, QD
     Route: 048

REACTIONS (4)
  - Haemoglobin decreased [Unknown]
  - Transfusion [Unknown]
  - Diabetic foot infection [Unknown]
  - Drug ineffective [Unknown]
